FAERS Safety Report 4404954-9 (Version None)
Quarter: 2004Q3

REPORT INFORMATION
  Report Type: 
  Country: None (occurrence: None)
  Receive Date: 20040716
  Receipt Date: 20040712
  Transmission Date: 20050211
  Serious: Yes (Life-Threatening, Hospitalization, Other)
  Sender: FDA-Public Use
  Company Number: HQWYE841201JUL04

PATIENT
  Age: 4 Year
  Sex: Male
  Weight: 16 kg

DRUGS (9)
  1. RAPAMUNE [Suspect]
     Indication: IMMUNOSUPPRESSANT DRUG THERAPY
     Dosage: 1 MG 1 X PER 1 DAY, ORAL
     Route: 048
     Dates: start: 20040430
  2. RAPAMUNE [Suspect]
     Indication: PROPHYLAXIS AGAINST TRANSPLANT REJECTION
     Dosage: 1 MG 1 X PER 1 DAY, ORAL
     Route: 048
     Dates: start: 20040430
  3. PREDNISONE [Concomitant]
  4. TACROLIMUS (TACROLIMUS) [Concomitant]
  5. TRIMETHOPRIM [Concomitant]
  6. VALGANCICLOVIR (VALGANCICLOVIR) [Concomitant]
  7. RANITIDINE [Concomitant]
  8. EPOGEN [Concomitant]
  9. NYSTATIN [Concomitant]

REACTIONS (3)
  - BLOOD CREATININE INCREASED [None]
  - ELECTROCARDIOGRAM T WAVE PEAKED [None]
  - HYPERKALAEMIA [None]
